FAERS Safety Report 16357249 (Version 1)
Quarter: 2019Q2

REPORT INFORMATION
  Report Type: Spontaneous
  Country: US (occurrence: US)
  Receive Date: 20190527
  Receipt Date: 20190527
  Transmission Date: 20190711
  Serious: No
  Sender: FDA-Public Use
  Company Number: US-TORRENT-00007658

PATIENT
  Sex: Male

DRUGS (1)
  1. LOSARTAN AND HYDROCHLOROTHIAZIDE [Suspect]
     Active Substance: HYDROCHLOROTHIAZIDE\LOSARTAN POTASSIUM
     Indication: PRODUCT USED FOR UNKNOWN INDICATION
     Dosage: ONE TAB A DAY
     Dates: end: 201902

REACTIONS (2)
  - Pruritus [Not Recovered/Not Resolved]
  - Burning sensation [Not Recovered/Not Resolved]

NARRATIVE: CASE EVENT DATE: 2018
